FAERS Safety Report 7395440-5 (Version None)
Quarter: 2011Q2

REPORT INFORMATION
  Report Type: 
  Country: None (occurrence: None)
  Receive Date: 20110405
  Receipt Date: 20110328
  Transmission Date: 20111010
  Serious: Yes (Other)
  Sender: FDA-Public Use
  Company Number: GB-TEVA-274320ISR

PATIENT
  Age: 60 Year
  Sex: Male
  Weight: 77.2 kg

DRUGS (1)
  1. SIMVASTATIN [Suspect]
     Dates: start: 20110316

REACTIONS (1)
  - MOUTH ULCERATION [None]
